FAERS Safety Report 7987526-9 (Version None)
Quarter: 2011Q4

REPORT INFORMATION
  Report Type: 
  Country: None (occurrence: None)
  Receive Date: 20111216
  Receipt Date: 20111205
  Transmission Date: 20120403
  Serious: Yes (Hospitalization)
  Sender: FDA-Public Use
  Company Number: PHEH2011US010895

PATIENT
  Sex: Male

DRUGS (1)
  1. AFINITOR [Suspect]
     Indication: RENAL CELL CARCINOMA
     Dosage: 5 MG, DAILY
     Route: 048
     Dates: start: 20111108

REACTIONS (9)
  - CRYING [None]
  - WEIGHT DECREASED [None]
  - GLOSSODYNIA [None]
  - THROMBOSIS [None]
  - RESTLESSNESS [None]
  - CHEST DISCOMFORT [None]
  - HEPATIC NEOPLASM [None]
  - INSOMNIA [None]
  - ORAL PAIN [None]
